FAERS Safety Report 6136633-4 (Version None)
Quarter: 2009Q1

REPORT INFORMATION
  Report Type: 
  Country: None (occurrence: None)
  Receive Date: 20090330
  Receipt Date: 20090326
  Transmission Date: 20090719
  Serious: Yes (Other)
  Sender: FDA-Public Use
  Company Number: A0775690A

PATIENT
  Age: 72 Year
  Sex: Male

DRUGS (2)
  1. HEPSERA [Suspect]
     Route: 048
  2. LAMIVUDINE [Suspect]

REACTIONS (2)
  - LIVER FUNCTION TEST ABNORMAL [None]
  - VIRAL LOAD INCREASED [None]
